FAERS Safety Report 6200025-X (Version None)
Quarter: 2009Q2

REPORT INFORMATION
  Report Type: 
  Country: None (occurrence: None)
  Receive Date: 20090522
  Receipt Date: 20090512
  Transmission Date: 20091009
  Serious: Yes (Death, Hospitalization, Other)
  Sender: FDA-Public Use
  Company Number: BE-MERCK-0712BEL00027

PATIENT
  Age: 50 Year
  Sex: Female
  Weight: 54 kg

DRUGS (12)
  1. CANCIDAS [Suspect]
     Indication: PYREXIA
     Route: 041
     Dates: start: 20071018, end: 20071018
  2. CANCIDAS [Suspect]
     Route: 041
     Dates: start: 20071019, end: 20071130
  3. CYCLOSPORINE [Concomitant]
     Indication: TRANSPLANT
     Route: 065
     Dates: start: 20071017, end: 20071023
  4. TACROLIMUS [Concomitant]
     Indication: TRANSPLANT
     Route: 065
     Dates: start: 20071025, end: 20071130
  5. MYCOPHENOLATE MOFETIL [Concomitant]
     Indication: TRANSPLANT
     Route: 065
     Dates: start: 20071102, end: 20071130
  6. AMIKACIN [Concomitant]
     Indication: PYREXIA
     Route: 065
     Dates: start: 20071012, end: 20071016
  7. MEROPENEM [Concomitant]
     Indication: PYREXIA
     Route: 065
     Dates: start: 20071031, end: 20071113
  8. TEICOPLANIN [Concomitant]
     Indication: PYREXIA
     Route: 065
     Dates: start: 20071018, end: 20071024
  9. CEFEPIME [Concomitant]
     Indication: PYREXIA
     Route: 065
     Dates: start: 20071012, end: 20071023
  10. CORTICOSTEROIDS (UNSPECIFIED) [Concomitant]
     Indication: TRANSPLANT
     Route: 065
  11. FLUCONAZOLE [Concomitant]
     Route: 048
     Dates: start: 20071004, end: 20071017
  12. LEVOFLOXACIN [Concomitant]
     Route: 065
     Dates: start: 20071011, end: 20071017

REACTIONS (5)
  - ACUTE RESPIRATORY DISTRESS SYNDROME [None]
  - BRONCHOPULMONARY ASPERGILLOSIS [None]
  - CYTOMEGALOVIRUS INFECTION [None]
  - DRUG INEFFECTIVE [None]
  - SEPTIC SHOCK [None]
